FAERS Safety Report 18369445 (Version 2)
Quarter: 2020Q4

REPORT INFORMATION
  Report Type: Spontaneous
  Country: US (occurrence: US)
  Receive Date: 20201012
  Receipt Date: 20201013
  Transmission Date: 20210114
  Serious: Yes (Other)
  Sender: FDA-Public Use
  Company Number: US-ROCHE-2692440

PATIENT
  Age: 74 Year
  Sex: Female

DRUGS (3)
  1. ACTEMRA [Suspect]
     Active Substance: TOCILIZUMAB
  2. ACTEMRA [Suspect]
     Active Substance: TOCILIZUMAB
  3. ACTEMRA [Suspect]
     Active Substance: TOCILIZUMAB
     Indication: PRODUCT USED FOR UNKNOWN INDICATION
     Dosage: ONGOING: NO, PFS 162MG/0.9 ML
     Route: 058
     Dates: start: 201803, end: 202008

REACTIONS (3)
  - Joint destruction [Unknown]
  - Drug ineffective [Unknown]
  - Oedema [Unknown]

NARRATIVE: CASE EVENT DATE: 20200801
